FAERS Safety Report 11738825 (Version 1)
Quarter: 2015Q4

REPORT INFORMATION
  Report Type: Spontaneous
  Country: US (occurrence: US)
  Receive Date: 20151113
  Receipt Date: 20151113
  Transmission Date: 20160304
  Serious: No
  Sender: FDA-Public Use
  Company Number: US-ROCHE-1245287

PATIENT
  Age: 61 Year
  Sex: Female
  Weight: 63.56 kg

DRUGS (9)
  1. TAXOTERE [Suspect]
     Active Substance: DOCETAXEL
     Indication: BREAST CANCER STAGE IV
     Route: 065
  2. FLAXSEED [Concomitant]
     Active Substance: FLAX SEED
  3. MILK THISTLE [Concomitant]
     Active Substance: MILK THISTLE
  4. TYKERB [Suspect]
     Active Substance: LAPATINIB DITOSYLATE
     Indication: BREAST CANCER METASTATIC
     Route: 065
  5. FISH OIL [Concomitant]
     Active Substance: FISH OIL
  6. KADCYLA [Suspect]
     Active Substance: ADO-TRASTUZUMAB EMTANSINE
     Indication: BREAST CANCER STAGE IV
     Route: 042
     Dates: start: 20130412
  7. HERCEPTIN [Suspect]
     Active Substance: TRASTUZUMAB
     Indication: BREAST CANCER STAGE IV
     Route: 065
  8. XELODA [Suspect]
     Active Substance: CAPECITABINE
     Indication: BREAST CANCER METASTATIC
     Route: 065
  9. VITAMIN E [Concomitant]
     Active Substance: .ALPHA.-TOCOPHEROL

REACTIONS (12)
  - Pleural fibrosis [Unknown]
  - Rectal haemorrhage [Unknown]
  - Neuropathy peripheral [Unknown]
  - Malaise [Unknown]
  - Fatigue [Unknown]
  - Pain [Unknown]
  - Hair texture abnormal [Unknown]
  - Alopecia [Unknown]
  - Dry mouth [Unknown]
  - Feeling abnormal [Recovered/Resolved]
  - Disease progression [Unknown]
  - Onychomadesis [Unknown]

NARRATIVE: CASE EVENT DATE: 20130416
